FAERS Safety Report 8856956 (Version 3)
Quarter: 2013Q2

REPORT INFORMATION
  Report Type: Spontaneous
  Country: US (occurrence: None)
  Receive Date: 20121015
  Receipt Date: 20130507
  Transmission Date: 20140414
  Serious: Yes (Other)
  Sender: FDA-Public Use
  Company Number: 2012033581

PATIENT
  Age: 24 Year
  Sex: Male

DRUGS (3)
  1. HIZENTRA [Suspect]
     Indication: HYPOGAMMAGLOBULINAEMIA
     Dosage: (SUBCUTANEOUS)
     Route: 058
  2. HIZENTRA [Suspect]
     Indication: SINOBRONCHITIS
     Dosage: (SUBCUTANEOUS)
     Route: 058
  3. TOPICAL CORTICOSTEROIDS (CORTICOSTEROIDS) [Concomitant]

REACTIONS (5)
  - Off label use [None]
  - Pityriasis lichenoides et varioliformis acuta [None]
  - Dyspnoea [None]
  - Skin lesion [None]
  - Pruritus [None]
